FAERS Safety Report 18964037 (Version 1)
Quarter: 2021Q1

REPORT INFORMATION
  Report Type: Spontaneous
  Country: CN (occurrence: CN)
  Receive Date: 20210303
  Receipt Date: 20210303
  Transmission Date: 20210420
  Serious: No
  Sender: FDA-Public Use
  Company Number: CN-LUPIN PHARMACEUTICALS INC.-2021-02622

PATIENT
  Age: 17 Year
  Sex: Male

DRUGS (5)
  1. CYTARABINE. [Suspect]
     Active Substance: CYTARABINE
     Dosage: UNK,HIGH?DOSE BEFORE ALLOGENEIC PERIPHERAL HAEMATOPOIETIC STEM CELL TRANSPLANT
     Route: 065
  2. METHOTREXATE. [Suspect]
     Active Substance: METHOTREXATE
     Indication: T-CELL TYPE ACUTE LEUKAEMIA
     Dosage: UNK,HIGH?DOSE BEFORE ALLOGENEIC PERIPHERAL HAEMATOPOIETIC STEM CELL TRANSPLANT
     Route: 065
  3. ACLARUBICIN [Suspect]
     Active Substance: ACLARUBICIN
     Indication: T-CELL TYPE ACUTE LEUKAEMIA
     Dosage: 10 MILLIGRAM, QD
     Route: 042
  4. CYTARABINE. [Suspect]
     Active Substance: CYTARABINE
     Indication: T-CELL TYPE ACUTE LEUKAEMIA
     Dosage: 10 MILLIGRAM/SQ. METER, BID
     Route: 058
  5. DECITABINE. [Suspect]
     Active Substance: DECITABINE
     Indication: T-CELL TYPE ACUTE LEUKAEMIA
     Dosage: 20 MILLIGRAM/SQ. METER, QD,ADMINISTERED OVER 1H ONCE DAILY
     Route: 042

REACTIONS (1)
  - Off label use [Unknown]
